FAERS Safety Report 15862065 (Version 1)
Quarter: 2018Q4

REPORT INFORMATION
  Report Type: Spontaneous
  Country: US (occurrence: US)
  Receive Date: 20181231
  Receipt Date: 20181231
  Transmission Date: 20190205
  Serious: Yes (Hospitalization, Congenital Anomaly)
  Sender: FDA-Public Use
  Company Number: None

PATIENT
  Age: 73 Year
  Sex: Female
  Weight: 69.6 kg

DRUGS (11)
  1. CALCIUM CARBONATE. [Concomitant]
     Active Substance: CALCIUM CARBONATE
  2. FLUTICASONE. [Concomitant]
     Active Substance: FLUTICASONE
  3. METOPROLOL SUCCINATE ER [Concomitant]
     Active Substance: METOPROLOL SUCCINATE
  4. AMIODARONE [Concomitant]
     Active Substance: AMIODARONE
  5. CHOLCALCIFEROL [Concomitant]
  6. APIXABAN (5MG BID OR 2.5MG BID) [Suspect]
     Active Substance: APIXABAN
     Indication: PULMONARY EMBOLISM
     Route: 048
     Dates: start: 20180730
  7. ALBUTEROL SULFATE. [Concomitant]
     Active Substance: ALBUTEROL SULFATE
  8. PYRIDOXINE [Concomitant]
     Active Substance: PYRIDOXINE
  9. MIDODRINE [Concomitant]
     Active Substance: MIDODRINE
  10. LORATADINE. [Concomitant]
     Active Substance: LORATADINE
  11. POLYETHYLENE GLYCOL [Concomitant]
     Active Substance: POLYETHYLENE GLYCOLS

REACTIONS (2)
  - Cellulitis [None]
  - Device related infection [None]

NARRATIVE: CASE EVENT DATE: 20180906
